FAERS Safety Report 5498832-4 (Version None)
Quarter: 2007Q4

REPORT INFORMATION
  Report Type: 
  Country: None (occurrence: None)
  Receive Date: 20071026
  Receipt Date: 20070724
  Transmission Date: 20080405
  Serious: No
  Sender: FDA-Public Use
  Company Number: A0666078A

PATIENT
  Age: 80 Year
  Sex: Female

DRUGS (17)
  1. ADVAIR DISKUS 100/50 [Suspect]
     Indication: ASTHMA
     Dosage: 1PUFF TWICE PER DAY
     Route: 055
     Dates: end: 20070723
  2. COZAAR [Concomitant]
  3. PRIMIDONE [Concomitant]
  4. AGGRENOX [Concomitant]
  5. PLAVIX [Concomitant]
  6. LEVICOR [Concomitant]
  7. RHINOCORT [Concomitant]
  8. ASMANEX TWISTHALER [Concomitant]
  9. ALBUTEROL [Concomitant]
  10. CALCIUM [Concomitant]
  11. HYZAAR [Concomitant]
  12. LIPITOR [Concomitant]
  13. SEREVENT [Concomitant]
  14. GABAPENTIN [Concomitant]
  15. FORTEO [Concomitant]
  16. SINGULAIR [Concomitant]
  17. ALLEGRA [Concomitant]

REACTIONS (2)
  - CHEST DISCOMFORT [None]
  - DYSPNOEA [None]
